FAERS Safety Report 6477467-0 (Version None)
Quarter: 2009Q4

REPORT INFORMATION
  Report Type: 
  Country: None (occurrence: None)
  Receive Date: 20091207
  Receipt Date: 20091117
  Transmission Date: 20100525
  Serious: Yes (Other)
  Sender: FDA-Public Use
  Company Number: CH-SANOFI-AVENTIS-2009SA003038

PATIENT
  Age: 94 Year
  Sex: Male

DRUGS (13)
  1. CLEXANE [Suspect]
     Dates: start: 20090724, end: 20090810
  2. LASIX [Suspect]
     Route: 048
     Dates: start: 20090727, end: 20090804
  3. PENICILLIN G [Suspect]
     Dates: start: 20090727, end: 20090804
  4. AMOXICILLIN SODIUM/CLAVULANATE POTASSIUM [Suspect]
     Route: 048
     Dates: start: 20090724, end: 20090727
  5. ROCEPHIN [Suspect]
     Route: 041
     Dates: start: 20090814, end: 20090822
  6. VANCOMYCIN HCL [Suspect]
     Dates: start: 20090725
  7. PERFALGAN [Suspect]
     Route: 041
     Dates: start: 20090824, end: 20090827
  8. PRADIF [Suspect]
     Route: 048
     Dates: start: 20090805, end: 20090810
  9. TORASEMIDE [Suspect]
     Route: 048
     Dates: start: 20090806, end: 20090810
  10. BUPRENORPHINE [Concomitant]
     Route: 048
     Dates: start: 20090724, end: 20090804
  11. FOLVITE [Concomitant]
     Route: 048
     Dates: start: 20090729, end: 20090810
  12. VITARUBIN [Concomitant]
     Route: 058
     Dates: start: 20090728, end: 20090810
  13. LAXOBERON [Concomitant]
     Route: 048
     Dates: start: 20090730, end: 20090810

REACTIONS (2)
  - MIXED LIVER INJURY [None]
  - RASH ERYTHEMATOUS [None]
